FAERS Safety Report 5512432-9 (Version None)
Quarter: 2007Q4

REPORT INFORMATION
  Report Type: 
  Country: None (occurrence: None)
  Receive Date: 20071112
  Receipt Date: 20061107
  Transmission Date: 20080405
  Serious: Yes (Other)
  Sender: FDA-Public Use
  Company Number: A0626582A

PATIENT
  Age: 58 Year
  Sex: Female

DRUGS (5)
  1. AVANDAMET [Suspect]
     Dosage: 1TAB TWICE PER DAY
     Route: 048
     Dates: start: 20020101
  2. AVANDIA [Suspect]
     Dosage: 4MG TWICE PER DAY
     Route: 048
     Dates: start: 19990101, end: 20020101
  3. NIFEDIPINE [Concomitant]
  4. LIPITOR [Concomitant]
  5. MICARDIS [Concomitant]

REACTIONS (2)
  - FATIGUE [None]
  - MACULAR OEDEMA [None]
